FAERS Safety Report 12917226 (Version 1)
Quarter: 2016Q4

REPORT INFORMATION
  Report Type: Spontaneous
  Country: US (occurrence: US)
  Receive Date: 20161107
  Receipt Date: 20161107
  Transmission Date: 20170207
  Serious: No
  Sender: FDA-Public Use
  Company Number: US-JAZZ-2016-US-017573

PATIENT
  Sex: Female

DRUGS (15)
  1. XYREM [Suspect]
     Active Substance: SODIUM OXYBATE
     Dosage: 3 G, BID
     Route: 048
     Dates: start: 201602
  2. AMOXICILLIN. [Concomitant]
     Active Substance: AMOXICILLIN
  3. PROPRANOLOL [Concomitant]
     Active Substance: PROPRANOLOL\PROPRANOLOL HYDROCHLORIDE
  4. CYMBALTA [Concomitant]
     Active Substance: DULOXETINE HYDROCHLORIDE
  5. XYREM [Suspect]
     Active Substance: SODIUM OXYBATE
     Dosage: DOSE ADJUSTMENTS
     Route: 048
     Dates: start: 201505, end: 201602
  6. MELOXICAM. [Concomitant]
     Active Substance: MELOXICAM
  7. PRIMIDONE. [Concomitant]
     Active Substance: PRIMIDONE
  8. TRIHEXYPHENIDYL [Concomitant]
     Active Substance: TRIHEXYPHENIDYL
  9. HYDROCODONE/ACETAMINOPHEN [Concomitant]
     Active Substance: ACETAMINOPHEN\HYDROCODONE
  10. MYSOLINE [Concomitant]
     Active Substance: PRIMIDONE
  11. NASCOBAL [Concomitant]
     Active Substance: CYANOCOBALAMIN
  12. XANAX [Concomitant]
     Active Substance: ALPRAZOLAM
  13. FLONASE [Concomitant]
     Active Substance: FLUTICASONE PROPIONATE
  14. XYREM [Suspect]
     Active Substance: SODIUM OXYBATE
     Indication: NARCOLEPSY
     Dosage: 1.5 G, BID
     Route: 048
     Dates: start: 201504, end: 201505
  15. TOPIRAMATE. [Concomitant]
     Active Substance: TOPIRAMATE

REACTIONS (1)
  - Rhinitis [Not Recovered/Not Resolved]
